FAERS Safety Report 10874678 (Version 1)
Quarter: 2015Q1

REPORT INFORMATION
  Report Type: Spontaneous
  Country: GB (occurrence: GB)
  Receive Date: 20150227
  Receipt Date: 20150227
  Transmission Date: 20150721
  Serious: Yes (Death, Disabling, Other)
  Sender: FDA-Public Use
  Company Number: GB-GLAXOSMITHKLINE-GB2015023901

PATIENT
  Age: 14 Year
  Sex: Female
  Weight: 41.9 kg

DRUGS (30)
  1. AMIKACIN [Concomitant]
     Active Substance: AMIKACIN
  2. LIPOSOMAL AMPHOTERICIN B [Concomitant]
     Active Substance: AMPHOTERICIN B
  3. COTRIMOXAZOLE [Concomitant]
     Active Substance: SULFAMETHOXAZOLE\TRIMETHOPRIM
  4. CYCLIZINE [Concomitant]
     Active Substance: CYCLIZINE
  5. LANSOPRAZOLE. [Concomitant]
     Active Substance: LANSOPRAZOLE
  6. ONDANSETRON [Concomitant]
     Active Substance: ONDANSETRON
  7. AMILORIDE [Concomitant]
     Active Substance: AMILORIDE
  8. CYCLOPHOSPHAMIDE. [Concomitant]
     Active Substance: CYCLOPHOSPHAMIDE
  9. METHOTREXATE [Concomitant]
     Active Substance: METHOTREXATE
  10. MOVICOL [Concomitant]
     Active Substance: POLYETHYLENE GLYCOL 3350\POTASSIUM CHLORIDE\SODIUM BICARBONATE\SODIUM CHLORIDE
  11. PIPERACILLIN AND TAZOBACTAM [Concomitant]
     Active Substance: PIPERACILLIN SODIUM\TAZOBACTAM SODIUM
  12. POTASSIUM CHLORIDE. [Concomitant]
     Active Substance: POTASSIUM CHLORIDE
  13. ACICLOVIR [Concomitant]
     Active Substance: ACYCLOVIR
  14. LACTULOSE SOLUTION [Concomitant]
  15. ATROPINE [Concomitant]
     Active Substance: ATROPINE
  16. NELARABINE [Suspect]
     Active Substance: NELARABINE
     Indication: PRECURSOR T-LYMPHOBLASTIC LYMPHOMA/LEUKAEMIA REFRACTORY
     Dosage: 5 DAY COURSE.
     Route: 042
     Dates: start: 20140710, end: 20140714
  17. MEROPENEM. [Concomitant]
     Active Substance: MEROPENEM
  18. METOCLOPRAMIDE. [Concomitant]
     Active Substance: METOCLOPRAMIDE
  19. RASBURICASE [Concomitant]
     Active Substance: RASBURICASE
  20. AMITRIPTYLINE [Concomitant]
     Active Substance: AMITRIPTYLINE
  21. MAGNESIUM GLYCEROPHOSPHATE [Concomitant]
     Active Substance: MAGNESIUM GLYCEROPHOSPHATE
  22. PARACETAMOL [Concomitant]
     Active Substance: ACETAMINOPHEN
  23. PHENYTOIN. [Concomitant]
     Active Substance: PHENYTOIN
  24. ALLOPURINOL. [Concomitant]
     Active Substance: ALLOPURINOL
  25. DEXAMETHASONE. [Concomitant]
     Active Substance: DEXAMETHASONE
  26. MELATONIN [Concomitant]
     Active Substance: MELATONIN
  27. MORPHINE SULFATE. [Concomitant]
     Active Substance: MORPHINE SULFATE
  28. PHOSPHATE SANDOZ EFFERVESCENT TABLETS [Concomitant]
  29. ETOPOSIDE. [Concomitant]
     Active Substance: ETOPOSIDE
  30. VANCOMYCIN [Concomitant]
     Active Substance: VANCOMYCIN

REACTIONS (14)
  - Areflexia [Unknown]
  - Muscle twitching [Unknown]
  - Dyspnoea [Unknown]
  - Dyskinesia [Unknown]
  - Peripheral sensorimotor neuropathy [Unknown]
  - Mutism [Unknown]
  - Unresponsive to stimuli [Unknown]
  - Muscular weakness [Unknown]
  - Screaming [Unknown]
  - Neurotoxicity [Not Recovered/Not Resolved]
  - Encephalopathy [Unknown]
  - Somnolence [Unknown]
  - Disease progression [Fatal]
  - Disorientation [Recovering/Resolving]

NARRATIVE: CASE EVENT DATE: 20140717
